FAERS Safety Report 9190389 (Version 1)
Quarter: 2013Q1

REPORT INFORMATION
  Report Type: Spontaneous
  Country: US (occurrence: None)
  Receive Date: 20130325
  Receipt Date: 20130325
  Transmission Date: 20140127
  Serious: Yes (Other)
  Sender: FDA-Public Use
  Company Number: None

PATIENT
  Age: 76 Year
  Sex: Male
  Weight: 86.18 kg

DRUGS (2)
  1. LEVITRA [Suspect]
     Indication: ERECTILE DYSFUNCTION
     Dosage: ONE AS NEEDED BUCCAL
     Route: 002
     Dates: start: 20130309, end: 20130310
  2. VIAGRA [Concomitant]

REACTIONS (2)
  - Intraocular haematoma [None]
  - Ocular hyperaemia [None]
